FAERS Safety Report 15128586 (Version 2)
Quarter: 2018Q3

REPORT INFORMATION
  Report Type: Spontaneous
  Country: DE (occurrence: DE)
  Receive Date: 20180711
  Receipt Date: 20180821
  Transmission Date: 20181010
  Serious: Yes (Other)
  Sender: FDA-Public Use
  Company Number: DE-BIOGEN-2018BI00604172

PATIENT
  Age: 49 Year
  Sex: Female

DRUGS (8)
  1. RENIFEMIN [Concomitant]
     Indication: MENOPAUSE
     Route: 065
     Dates: start: 2016
  2. VITAMIN B 2 [Concomitant]
     Indication: GASTROOESOPHAGEAL REFLUX DISEASE
     Route: 065
     Dates: start: 2013
  3. TECFIDERA [Suspect]
     Active Substance: DIMETHYL FUMARATE
     Indication: MULTIPLE SCLEROSIS
     Route: 048
     Dates: start: 20151116
  4. PANTOPRAZOLE [Concomitant]
     Active Substance: PANTOPRAZOLE
     Indication: GASTROOESOPHAGEAL REFLUX DISEASE
     Route: 065
     Dates: start: 2013
  5. METHYLPREDNISOLONE. [Concomitant]
     Active Substance: METHYLPREDNISOLONE
     Route: 065
     Dates: start: 201807
  6. SPASMOLYT [Concomitant]
     Indication: MICTURITION DISORDER
     Dosage: 1.5 TABLETS DAILY
     Route: 065
  7. L?THYROXINE [Concomitant]
     Active Substance: LEVOTHYROXINE
     Indication: THYROID OPERATION
     Route: 065
     Dates: start: 2004
  8. METHYLPREDNISOLONE. [Concomitant]
     Active Substance: METHYLPREDNISOLONE
     Indication: MULTIPLE SCLEROSIS RELAPSE
     Route: 065
     Dates: start: 201608

REACTIONS (1)
  - Superficial spreading melanoma stage II [Not Recovered/Not Resolved]

NARRATIVE: CASE EVENT DATE: 201805
